FAERS Safety Report 13602248 (Version 1)
Quarter: 2017Q2

REPORT INFORMATION
  Report Type: Spontaneous
  Country: CH (occurrence: GB)
  Receive Date: 20170601
  Receipt Date: 20170601
  Transmission Date: 20170830
  Serious: Yes (Other)
  Sender: FDA-Public Use
  Company Number: CH-LPDUSPRD-20170677

PATIENT
  Age: 23 Year
  Sex: Female

DRUGS (2)
  1. FERINJECT [Suspect]
     Active Substance: FERRIC CARBOXYMALTOSE
     Dosage: 1GRAM
     Route: 041
     Dates: start: 20160830, end: 20160830
  2. ENOXAPARIN [Concomitant]
     Active Substance: ENOXAPARIN
     Dosage: DOSE UNKNOWN
     Route: 058

REACTIONS (2)
  - Exposure during pregnancy [Unknown]
  - Cholecystitis [Unknown]

NARRATIVE: CASE EVENT DATE: 20160830
